FAERS Safety Report 7867906-2 (Version None)
Quarter: 2011Q4

REPORT INFORMATION
  Report Type: 
  Country: None (occurrence: None)
  Receive Date: 20111028
  Receipt Date: 20111018
  Transmission Date: 20120403
  Serious: Yes (Other)
  Sender: FDA-Public Use
  Company Number: PHHY2011JP69234

PATIENT
  Age: 9 Year
  Sex: Female

DRUGS (2)
  1. LEVETIRACETAM [Suspect]
     Indication: PARTIAL SEIZURES
     Dosage: 1000 MG, DAILY
     Route: 048
     Dates: start: 20091001, end: 20100901
  2. OXCARBAZEPINE [Suspect]
     Indication: PARTIAL SEIZURES
     Dosage: 750 MG, DAILY
     Route: 048
     Dates: start: 20070226, end: 20100601

REACTIONS (5)
  - PETIT MAL EPILEPSY [None]
  - PSEUDOBULBAR PALSY [None]
  - AGGRESSION [None]
  - PARTIAL SEIZURES [None]
  - CONVULSION [None]
